FAERS Safety Report 16845801 (Version 1)
Quarter: 2019Q3

REPORT INFORMATION
  Report Type: Spontaneous
  Country: ES (occurrence: ES)
  Receive Date: 20190924
  Receipt Date: 20190924
  Transmission Date: 20191005
  Serious: Yes (Other)
  Sender: FDA-Public Use
  Company Number: PHHY2019ES219573

PATIENT
  Age: 78 Year
  Sex: Female

DRUGS (2)
  1. ENANTYUM [Suspect]
     Active Substance: DEXKETOPROFEN TROMETAMOL
     Indication: ENDODONTIC PROCEDURE
     Dosage: 75 MG, QD
     Route: 048
     Dates: start: 20190906, end: 20190910
  2. AMOXICILLIN + CLAVULANATE POTASSIUM [Suspect]
     Active Substance: AMOXICILLIN\CLAVULANATE POTASSIUM
     Indication: ENDODONTIC PROCEDURE
     Dosage: UNK (2625/375MG (875/125MG 3 IN 1 D))
     Route: 065

REACTIONS (2)
  - Back pain [Unknown]
  - Pain in extremity [Unknown]

NARRATIVE: CASE EVENT DATE: 20190906
